FAERS Safety Report 10171136 (Version 2)
Quarter: 2014Q2

REPORT INFORMATION
  Report Type: Spontaneous
  Country: US (occurrence: None)
  Receive Date: 20140512
  Receipt Date: 20140620
  Transmission Date: 20141212
  Serious: Yes (Hospitalization)
  Sender: FDA-Public Use
  Company Number: SYM-2014-20634

PATIENT
  Sex: Female

DRUGS (1)
  1. CUPRIMINE [Suspect]
     Indication: HEPATO-LENTICULAR DEGENERATION

REACTIONS (3)
  - Neurological decompensation [None]
  - Mental status changes [None]
  - Dementia [None]
